FAERS Safety Report 14804862 (Version 1)
Quarter: 2018Q2

REPORT INFORMATION
  Report Type: Spontaneous
  Country: US (occurrence: US)
  Receive Date: 20180425
  Receipt Date: 20180425
  Transmission Date: 20180711
  Serious: Yes (Other)
  Sender: FDA-Public Use
  Company Number: US-BAYER-2018-077253

PATIENT
  Age: 64 Year
  Sex: Male

DRUGS (2)
  1. STIVARGA [Suspect]
     Active Substance: REGORAFENIB
     Indication: GASTROINTESTINAL STROMAL CANCER
     Dosage: DAILY DOSE 80 MG
     Route: 048
     Dates: start: 20180213
  2. STIVARGA [Suspect]
     Active Substance: REGORAFENIB
     Indication: GASTROINTESTINAL STROMAL CANCER
     Dosage: DAILY DOSE 80 MG
     Route: 048
     Dates: start: 20180208, end: 201802

REACTIONS (6)
  - Diarrhoea [None]
  - Rash [None]
  - Rash [Recovered/Resolved]
  - Skin exfoliation [Recovered/Resolved]
  - Skin exfoliation [None]
  - Off label use [None]

NARRATIVE: CASE EVENT DATE: 201802
